FAERS Safety Report 12336857 (Version 1)
Quarter: 2016Q2

REPORT INFORMATION
  Report Type: Spontaneous
  Country: US (occurrence: None)
  Receive Date: 20160504
  Receipt Date: 20160504
  Transmission Date: 20160815
  Serious: Yes (Hospitalization)
  Sender: FDA-Public Use
  Company Number: None

PATIENT
  Age: 70 Year
  Sex: Male
  Weight: 88.5 kg

DRUGS (1)
  1. HEPARIN [Suspect]
     Active Substance: HEPARIN SODIUM
     Indication: DEEP VEIN THROMBOSIS
     Dates: start: 20151226, end: 20151228

REACTIONS (7)
  - Skin discolouration [None]
  - Colitis ischaemic [None]
  - Respiratory distress [None]
  - Acute kidney injury [None]
  - Anaemia [None]
  - Gastric haemorrhage [None]
  - Septic shock [None]

NARRATIVE: CASE EVENT DATE: 20151228
